FAERS Safety Report 21901926 (Version 1)
Quarter: 2023Q1

REPORT INFORMATION
  Report Type: Spontaneous
  Country: US (occurrence: US)
  Receive Date: 20230124
  Receipt Date: 20230124
  Transmission Date: 20230417
  Serious: No
  Sender: FDA-Public Use
  Company Number: US-PADAGIS-2023PAD00036

PATIENT

DRUGS (2)
  1. MOMETASONE FUROATE [Suspect]
     Active Substance: MOMETASONE FUROATE
     Indication: Folliculitis
     Dosage: UNK, (1 WEEK)
     Route: 061
  2. CLINDAMYCIN [Suspect]
     Active Substance: CLINDAMYCIN
     Indication: Folliculitis
     Dosage: UNK, (1 WEEK)
     Route: 061

REACTIONS (4)
  - Klebsiella infection [Recovering/Resolving]
  - Dermatitis contact [Unknown]
  - Therapy partial responder [Unknown]
  - Product use in unapproved indication [Unknown]
